FAERS Safety Report 6604657-6 (Version None)
Quarter: 2010Q1

REPORT INFORMATION
  Report Type: 
  Country: None (occurrence: None)
  Receive Date: 20100226
  Receipt Date: 20100223
  Transmission Date: 20100710
  Serious: Yes (Other)
  Sender: FDA-Public Use
  Company Number: US-ROCHE-652894

PATIENT
  Sex: Female

DRUGS (9)
  1. PEG-INTERFERON A-2A (RO 25-8310) [Suspect]
     Indication: HEPATITIS C
     Route: 065
     Dates: start: 20060101
  2. PEG-INTERFERON A-2A (RO 25-8310) [Suspect]
     Dosage: FORM: PFS;
     Route: 065
     Dates: start: 20090419
  3. SOTALOL [Concomitant]
  4. COUMADIN [Concomitant]
  5. PROTONIX [Concomitant]
  6. LASIX [Concomitant]
  7. XOPENEX [Concomitant]
  8. HYDROXYZINE [Concomitant]
  9. CALCIUM [Concomitant]

REACTIONS (13)
  - ALANINE AMINOTRANSFERASE INCREASED [None]
  - ARTHRITIS [None]
  - CARDIAC DISORDER [None]
  - EYE IRRITATION [None]
  - HAEMOGLOBIN DECREASED [None]
  - HOMICIDAL IDEATION [None]
  - INJECTION SITE RASH [None]
  - PHARYNGITIS [None]
  - PLATELET COUNT DECREASED [None]
  - RETINAL DISORDER [None]
  - VISION BLURRED [None]
  - VISUAL IMPAIRMENT [None]
  - WHITE BLOOD CELL COUNT DECREASED [None]
